FAERS Safety Report 14424555 (Version 1)
Quarter: 2018Q1

REPORT INFORMATION
  Report Type: Spontaneous
  Country: TW (occurrence: TW)
  Receive Date: 20180123
  Receipt Date: 20180123
  Transmission Date: 20180509
  Serious: Yes (Death, Other)
  Sender: FDA-Public Use
  Company Number: TW-MYLANLABS-2018M1004826

PATIENT
  Age: 76 Year
  Sex: Female

DRUGS (1)
  1. ESOMEPRAZOLE [Suspect]
     Active Substance: ESOMEPRAZOLE
     Indication: GASTROINTESTINAL HAEMORRHAGE
     Dosage: UNK
     Route: 065

REACTIONS (4)
  - Type IV hypersensitivity reaction [Fatal]
  - Toxic epidermal necrolysis [Fatal]
  - Cardiopulmonary failure [Fatal]
  - Sepsis [Fatal]
